FAERS Safety Report 20489404 (Version 1)
Quarter: 2022Q1

REPORT INFORMATION
  Report Type: Spontaneous
  Country: US (occurrence: None)
  Receive Date: 20220217
  Receipt Date: 20220217
  Transmission Date: 20220424
  Serious: Yes (Hospitalization)
  Sender: FDA-Public Use
  Company Number: None

PATIENT
  Age: 60 Year
  Sex: Female
  Weight: 83.25 kg

DRUGS (1)
  1. CELEBREX [Suspect]
     Active Substance: CELECOXIB
     Indication: Postoperative care
     Route: 048
     Dates: start: 20200708, end: 20200708

REACTIONS (3)
  - Decreased appetite [None]
  - Hypophagia [None]
  - Taste disorder [None]

NARRATIVE: CASE EVENT DATE: 20200708
